FAERS Safety Report 8048571-0 (Version None)
Quarter: 2012Q1

REPORT INFORMATION
  Report Type: 
  Country: None (occurrence: None)
  Receive Date: 20120117
  Receipt Date: 20120109
  Transmission Date: 20120608
  Serious: Yes (Life-Threatening)
  Sender: FDA-Public Use
  Company Number: FR-BRISTOL-MYERS SQUIBB COMPANY-16341240

PATIENT
  Age: 74 Year
  Sex: Female

DRUGS (11)
  1. FUROSEMIDE [Concomitant]
     Dosage: FUROSEMIDE RPG
     Dates: end: 20111119
  2. BISOPROLOL FUMARATE [Concomitant]
  3. CRESTOR [Concomitant]
     Dosage: CRESTOR 10 MG, FILM-COATED TABLET (ROSUVASTATIN),
  4. RILMENIDINE [Concomitant]
     Dosage: RILMENIDINE MERCK 1 MG, TABLET (RILMENIDIN),
  5. NIDREL [Concomitant]
     Dosage: NIDREL 20 MG, TABLET (NITRENDIPINE),
  6. METFORMIN HCL [Concomitant]
     Dosage: STAGID 700 MG, SCORED-TABLET (METFORMIN).
     Dates: end: 20111119
  7. IRBESARTAN [Suspect]
     Route: 048
     Dates: end: 20111119
  8. ALDALIX [Suspect]
     Dosage: 1 DF:ALDALIX 50 MG/ 20 MG CAPS ONE CAPSULE DAILY
     Route: 048
     Dates: start: 20110906, end: 20111119
  9. DIAMICRON [Concomitant]
     Dosage: DIAMICRON 30 MG, MODIFIED-RELEASE TABLET
     Dates: end: 20111119
  10. ALLOPURINOL [Concomitant]
     Dosage: ALLOPURINOL RATIOPHARM
  11. ZYPREXA [Concomitant]

REACTIONS (2)
  - HYPERKALAEMIA [None]
  - RENAL FAILURE ACUTE [None]
